FAERS Safety Report 11967242 (Version 1)
Quarter: 2016Q1

REPORT INFORMATION
  Report Type: Spontaneous
  Country: GB (occurrence: GB)
  Receive Date: 20160127
  Receipt Date: 20160127
  Transmission Date: 20160526
  Serious: Yes (Hospitalization, Other)
  Sender: FDA-Public Use
  Company Number: GB-TEVA-626765ACC

PATIENT
  Age: 89 Year
  Sex: Female
  Weight: 45.6 kg

DRUGS (13)
  1. MIRTAZAPINE. [Suspect]
     Active Substance: MIRTAZAPINE
     Dosage: 15 MILLIGRAM DAILY; 15 MG; EVERY NIGHT
     Route: 048
     Dates: end: 20151224
  2. WARFARIN [Concomitant]
     Active Substance: WARFARIN
  3. DIGOXIN. [Concomitant]
     Active Substance: DIGOXIN
  4. BUTRANS [Concomitant]
     Active Substance: BUPRENORPHINE
  5. LACTULOSE. [Concomitant]
     Active Substance: LACTULOSE
  6. ANASTROZOLE. [Concomitant]
     Active Substance: ANASTROZOLE
  7. LANSOPRAZOLE. [Suspect]
     Active Substance: LANSOPRAZOLE
     Dosage: 15 MILLIGRAM DAILY; 15 MG; EVERY MORNING
     Route: 048
     Dates: end: 20151224
  8. FERROUS SULFATE [Concomitant]
     Active Substance: FERROUS SULFATE\FERROUS SULFATE, DRIED
  9. PARACETAMOL [Concomitant]
     Active Substance: ACETAMINOPHEN
  10. CALCICHEW D3 [Concomitant]
     Active Substance: CALCIUM\CHOLECALCIFEROL
  11. TRAMADOL. [Concomitant]
     Active Substance: TRAMADOL
  12. ALENDRONATE [Concomitant]
     Active Substance: ALENDRONATE SODIUM
  13. FUROSEMIDE. [Suspect]
     Active Substance: FUROSEMIDE
     Dosage: 40 MILLIGRAM DAILY; 40 MG; EVERY MORNING
     Route: 048
     Dates: end: 20151224

REACTIONS (1)
  - Hyponatraemia [Recovering/Resolving]
